FAERS Safety Report 6655982-4 (Version None)
Quarter: 2010Q1

REPORT INFORMATION
  Report Type: 
  Country: None (occurrence: None)
  Receive Date: 20100326
  Receipt Date: 20100326
  Transmission Date: 20100710
  Serious: Yes (Life-Threatening, Hospitalization, Other)
  Sender: FDA-Public Use
  Company Number: None

PATIENT
  Sex: Male
  Weight: 70.3075 kg

DRUGS (1)
  1. PROAIR HFA [Suspect]
     Indication: ASTHMA
     Dosage: TWO PUFFS 3 TIMES DAILY

REACTIONS (3)
  - DRUG INEFFECTIVE [None]
  - LUNG DISORDER [None]
  - PRODUCT SUBSTITUTION ISSUE [None]
